FAERS Safety Report 23232910 (Version 1)
Quarter: 2023Q4

REPORT INFORMATION
  Report Type: Spontaneous
  Country: AU (occurrence: AU)
  Receive Date: 20231128
  Receipt Date: 20231128
  Transmission Date: 20240110
  Serious: Yes (Other)
  Sender: FDA-Public Use
  Company Number: AU-AMGEN-AUSSP2023205910

PATIENT
  Sex: Female

DRUGS (1)
  1. PROLIA [Suspect]
     Active Substance: DENOSUMAB
     Indication: Product used for unknown indication
     Dosage: UNK
     Route: 065

REACTIONS (6)
  - Meniere^s disease [Unknown]
  - Rib fracture [Unknown]
  - Tooth disorder [Unknown]
  - Product storage error [Unknown]
  - Circumstance or information capable of leading to medication error [Unknown]
  - Fall [Unknown]
